FAERS Safety Report 5776461-2 (Version None)
Quarter: 2008Q2

REPORT INFORMATION
  Report Type: 
  Country: None (occurrence: None)
  Receive Date: 20080617
  Receipt Date: 20080617
  Transmission Date: 20081010
  Serious: Yes (Other)
  Sender: FDA-Public Use
  Company Number: None

PATIENT
  Age: 61 Year
  Sex: Female
  Weight: 68.0396 kg

DRUGS (1)
  1. FLUCONAZOLE [Suspect]
     Indication: VULVOVAGINAL MYCOTIC INFECTION
     Dosage: ONE -1- 150MG TAB  ONE TIME     PO
     Route: 048
     Dates: start: 20080115, end: 20080115

REACTIONS (2)
  - ORAL CANDIDIASIS [None]
  - PHARMACEUTICAL PRODUCT COMPLAINT [None]
